FAERS Safety Report 23208222 (Version 2)
Quarter: 2023Q4

REPORT INFORMATION
  Report Type: Spontaneous
  Country: DE (occurrence: DE)
  Receive Date: 20231121
  Receipt Date: 20231124
  Transmission Date: 20240110
  Serious: Yes (Other)
  Sender: FDA-Public Use
  Company Number: DE-UCBSA-2023036975

PATIENT
  Age: 35 Year
  Sex: Male
  Weight: 61 kg

DRUGS (13)
  1. LAMOTRIGINE [Suspect]
     Active Substance: LAMOTRIGINE
     Indication: Product used for unknown indication
     Dosage: UNK
  2. LAMOTRIGINE [Suspect]
     Active Substance: LAMOTRIGINE
     Dosage: TENTH AND ELEVENTH WEEK: 25-0
  3. LAMOTRIGINE [Suspect]
     Active Substance: LAMOTRIGINE
     Dosage: FIFTH WEEK: 50-50 SIXTH WEEK: STILL 50-50
  4. LAMOTRIGINE [Suspect]
     Active Substance: LAMOTRIGINE
     Dosage: FOURTH WEEK: 50-25
  5. LAMOTRIGINE [Suspect]
     Active Substance: LAMOTRIGINE
     Dosage: SEVENTH WEEK: CONTINUED TO KEEP THE LEVEL OF 50-50
  6. LAMOTRIGINE [Suspect]
     Active Substance: LAMOTRIGINE
     Dosage: EIGHTH WEEK: DOSED DOWN TO 50-25
  7. LAMOTRIGINE [Suspect]
     Active Substance: LAMOTRIGINE
     Dosage: THIRD WEEK: 25-25
  8. LAMOTRIGINE [Suspect]
     Active Substance: LAMOTRIGINE
     Dosage: NINTH WEEK: FURTHER REDUCED TO 25-25
  9. LAMOTRIGINE [Suspect]
     Active Substance: LAMOTRIGINE
     Dosage: FIRST 2 WEEKS: 25-0
  10. LACOSAMIDE [Suspect]
     Active Substance: LACOSAMIDE
     Indication: Product used for unknown indication
     Dosage: UNK
  11. PRIMIDONE [Suspect]
     Active Substance: PRIMIDONE
     Indication: Product used for unknown indication
     Dosage: UNK
  12. Valproate ergenyl chrono 500 [Concomitant]
     Indication: Product used for unknown indication
  13. valproate stada 300 [Concomitant]
     Indication: Product used for unknown indication

REACTIONS (21)
  - Umbilical haemorrhage [Unknown]
  - Petit mal epilepsy [Unknown]
  - Umbilical haemorrhage [Unknown]
  - Epilepsy [Unknown]
  - Lip haemorrhage [Recovered/Resolved]
  - Ingrown hair [Unknown]
  - Axillary pain [Recovering/Resolving]
  - Loss of libido [Recovering/Resolving]
  - Lip injury [Unknown]
  - Restlessness [Unknown]
  - Hypophagia [Unknown]
  - Weight decreased [Unknown]
  - Muscle twitching [Unknown]
  - Subcutaneous abscess [Recovering/Resolving]
  - Anger [Unknown]
  - Pruritus [Unknown]
  - Aggression [Recovering/Resolving]
  - Insomnia [Unknown]
  - Alopecia [Unknown]
  - Hypersensitivity [Recovering/Resolving]
  - Pruritus [Recovering/Resolving]
